FAERS Safety Report 9070592 (Version 9)
Quarter: 2016Q2

REPORT INFORMATION
  Report Type: Spontaneous
  Country: US (occurrence: US)
  Receive Date: 20130206
  Receipt Date: 20160509
  Transmission Date: 20160815
  Serious: No
  Sender: FDA-Public Use
  Company Number: US-009507513-1302USA000868

PATIENT
  Sex: Male

DRUGS (1)
  1. PROPECIA [Suspect]
     Active Substance: FINASTERIDE
     Indication: ANDROGENETIC ALOPECIA
     Dosage: 1 MG, QD
     Route: 048
     Dates: start: 20030926, end: 20110426

REACTIONS (15)
  - Sexual dysfunction [Not Recovered/Not Resolved]
  - Benign prostatic hyperplasia [Unknown]
  - Depression [Not Recovered/Not Resolved]
  - Nausea [Unknown]
  - Gastrooesophageal reflux disease [Unknown]
  - Genital pain [Not Recovered/Not Resolved]
  - Male orgasmic disorder [Unknown]
  - Erectile dysfunction [Not Recovered/Not Resolved]
  - Obsessive-compulsive disorder [Unknown]
  - Fatigue [Unknown]
  - Cognitive disorder [Not Recovered/Not Resolved]
  - Hyperlipidaemia [Recovered/Resolved]
  - Anxiety [Not Recovered/Not Resolved]
  - Bacterial infection [Unknown]
  - Decreased interest [Unknown]

NARRATIVE: CASE EVENT DATE: 20031212
